FAERS Safety Report 12669864 (Version 1)
Quarter: 2016Q3

REPORT INFORMATION
  Report Type: Spontaneous
  Country: US (occurrence: US)
  Receive Date: 20160819
  Receipt Date: 20160819
  Transmission Date: 20161109
  Serious: Yes (Other)
  Sender: FDA-Public Use
  Company Number: US-BAYER-2016-161626

PATIENT
  Age: 46 Year
  Sex: Female
  Weight: 85.71 kg

DRUGS (1)
  1. COPPERTONE CLEARLY SHEER FOR BEACH AND POOL SPF 50 PLUS [Suspect]
     Active Substance: AVOBENZONE\HOMOSALATE\OCTISALATE\OCTOCRYLENE\OXYBENZONE
     Dosage: UNK

REACTIONS (3)
  - Chemical burns of eye [None]
  - Accidental exposure to product [None]
  - Visual impairment [None]

NARRATIVE: CASE EVENT DATE: 20160812
